FAERS Safety Report 13174408 (Version 1)
Quarter: 2017Q1

REPORT INFORMATION
  Report Type: Other
  Country: IT (occurrence: IT)
  Receive Date: 20170201
  Receipt Date: 20170201
  Transmission Date: 20170428
  Serious: Yes (Disabling)
  Sender: FDA-Public Use
  Company Number: IT-ASTELLAS-2017US003424

PATIENT
  Sex: Female

DRUGS (1)
  1. VESIKER [Suspect]
     Active Substance: SOLIFENACIN
     Indication: URINARY INCONTINENCE
     Route: 048
     Dates: start: 20040101, end: 20161119

REACTIONS (1)
  - Amyotrophic lateral sclerosis [Recovered/Resolved]
